FAERS Safety Report 22530835 (Version 1)
Quarter: 2023Q2

REPORT INFORMATION
  Report Type: Spontaneous
  Country: CN (occurrence: CN)
  Receive Date: 20230607
  Receipt Date: 20230607
  Transmission Date: 20230722
  Serious: Yes (Other)
  Sender: FDA-Public Use
  Company Number: CN-SUN PHARMACEUTICAL INDUSTRIES LTD-2023R1-390241

PATIENT
  Age: 63 Year
  Sex: Male

DRUGS (4)
  1. TAMSULOSIN HYDROCHLORIDE [Suspect]
     Active Substance: TAMSULOSIN HYDROCHLORIDE
     Indication: Micturition urgency
     Dosage: 0.2 MILLIGRAM, DAILY
     Route: 065
  2. TAMSULOSIN HYDROCHLORIDE [Suspect]
     Active Substance: TAMSULOSIN HYDROCHLORIDE
     Indication: Dysuria
  3. HERBALS [Suspect]
     Active Substance: HERBALS
     Indication: Micturition urgency
     Dosage: 2 GRAM, TID
     Route: 065
  4. HERBALS [Suspect]
     Active Substance: HERBALS
     Indication: Dysuria

REACTIONS (2)
  - Liver injury [Unknown]
  - Cholestatic liver injury [Recovered/Resolved]
